FAERS Safety Report 5120377-1 (Version None)
Quarter: 2006Q3

REPORT INFORMATION
  Report Type: 
  Country: None (occurrence: None)
  Receive Date: 20060928
  Receipt Date: 20060915
  Transmission Date: 20061208
  Serious: Yes (Other)
  Sender: FDA-Public Use
  Company Number: STI-2006-00586

PATIENT
  Age: 46 Year
  Sex: Female

DRUGS (2)
  1. DUAC [Suspect]
     Indication: ACNE
     Dosage: 2 APP (1 APP,2 IN 1 DAYS)
     Route: 061
     Dates: start: 20060825, end: 20060827
  2. DIFFERIN [Concomitant]

REACTIONS (2)
  - HYPERSENSITIVITY [None]
  - INAPPROPRIATE SCHEDULE OF DRUG ADMINISTRATION [None]
